FAERS Safety Report 14122026 (Version 1)
Quarter: 2017Q4

REPORT INFORMATION
  Report Type: Spontaneous
  Country: US (occurrence: US)
  Receive Date: 20171024
  Receipt Date: 20171024
  Transmission Date: 20180321
  Serious: Yes (Other)
  Sender: FDA-Public Use
  Company Number: US-SA-2017SA081307

PATIENT
  Age: 59 Year
  Sex: Female
  Weight: 54.4 kg

DRUGS (17)
  1. METHOTREXATE. [Suspect]
     Active Substance: METHOTREXATE
     Indication: RHEUMATOID ARTHRITIS
     Route: 065
  2. AMITRIPTYLINE [Concomitant]
     Active Substance: AMITRIPTYLINE
     Route: 065
     Dates: start: 20160822
  3. MEDROL [Concomitant]
     Active Substance: METHYLPREDNISOLONE
     Route: 065
  4. HYDROCHLOROTHIAZIDE/TRIAMTERENE [Concomitant]
     Route: 065
     Dates: start: 20120214
  5. ANSAID [Concomitant]
     Active Substance: FLURBIPROFEN
     Route: 065
     Dates: start: 20160701, end: 20161227
  6. FLEXERIL [Concomitant]
     Active Substance: CYCLOBENZAPRINE HYDROCHLORIDE
     Route: 065
     Dates: start: 20161115
  7. FLEXERIL [Concomitant]
     Active Substance: CYCLOBENZAPRINE HYDROCHLORIDE
     Route: 065
     Dates: start: 20120202
  8. AMITRIPTYLINE [Concomitant]
     Active Substance: AMITRIPTYLINE
     Route: 065
     Dates: start: 20140227
  9. GOLD SODIUM THIOMALATE [Concomitant]
     Active Substance: GOLD SODIUM THIOMALATE
     Route: 065
  10. REMICADE [Concomitant]
     Active Substance: INFLIXIMAB
     Route: 065
  11. ARAVA [Suspect]
     Active Substance: LEFLUNOMIDE
     Indication: RHEUMATOID ARTHRITIS
     Route: 048
     Dates: start: 20160628, end: 20161224
  12. PLAQUENIL [Suspect]
     Active Substance: HYDROXYCHLOROQUINE SULFATE
     Indication: RHEUMATOID ARTHRITIS
     Route: 065
  13. SIMPONI [Suspect]
     Active Substance: GOLIMUMAB
     Indication: RHEUMATOID ARTHRITIS
     Route: 065
  14. HYDROCHLOROTHIAZIDE/TRIAMTERENE [Concomitant]
     Route: 065
     Dates: start: 20130902
  15. AMITRIPTYLINE [Concomitant]
     Active Substance: AMITRIPTYLINE
     Route: 065
     Dates: start: 20170213
  16. ENBREL [Suspect]
     Active Substance: ETANERCEPT
     Indication: RHEUMATOID ARTHRITIS
     Route: 065
  17. HYDROCHLOROTHIAZIDE/TRIAMTERENE [Concomitant]
     Route: 065
     Dates: start: 20140912

REACTIONS (10)
  - Pain [Not Recovered/Not Resolved]
  - Enthesopathy [Not Recovered/Not Resolved]
  - Drug ineffective [Unknown]
  - Eye disorder [Unknown]
  - Back pain [Not Recovered/Not Resolved]
  - Bursitis [Not Recovered/Not Resolved]
  - Scar [Not Recovered/Not Resolved]
  - Arthritis [Not Recovered/Not Resolved]
  - Crepitations [Not Recovered/Not Resolved]
  - Rheumatoid arthritis [Not Recovered/Not Resolved]
